FAERS Safety Report 17186856 (Version 2)
Quarter: 2020Q4

REPORT INFORMATION
  Report Type: Report from Study
  Country: CA (occurrence: CA)
  Receive Date: 20191220
  Receipt Date: 20201016
  Transmission Date: 20210113
  Serious: Yes (Hospitalization, Other)
  Sender: FDA-Public Use
  Company Number: CA-BIOGEN-2019BI00818255

PATIENT
  Sex: Female

DRUGS (1)
  1. FAMPYRA [Suspect]
     Active Substance: DALFAMPRIDINE
     Indication: GAIT DISTURBANCE
     Route: 048
     Dates: start: 20151015

REACTIONS (6)
  - Gastric disorder [Unknown]
  - Flatulence [Unknown]
  - Nephrolithiasis [Unknown]
  - Chest pain [Unknown]
  - Cholelithiasis [Unknown]
  - Bile duct stone [Unknown]

NARRATIVE: CASE EVENT DATE: 2015
